FAERS Safety Report 10268564 (Version 3)
Quarter: 2014Q3

REPORT INFORMATION
  Report Type: Spontaneous
  Country: FR (occurrence: FR)
  Receive Date: 20140630
  Receipt Date: 20140909
  Transmission Date: 20150326
  Serious: Yes (Hospitalization)
  Sender: FDA-Public Use
  Company Number: FR-PFIZER INC-2014178276

PATIENT
  Age: 78 Year
  Sex: Male

DRUGS (17)
  1. BISOCE [Suspect]
     Active Substance: BISOPROLOL
     Dosage: 1 DF, DAILY
     Route: 065
     Dates: start: 2011
  2. AMIODARONE HCL [Suspect]
     Active Substance: AMIODARONE HYDROCHLORIDE
     Dosage: 100 MG, DAILY
     Route: 048
     Dates: start: 2011
  3. PREDNISONE. [Suspect]
     Active Substance: PREDNISONE
     Dosage: 10 MG, DAILY
     Route: 048
     Dates: start: 2011
  4. PRAXILENE [Suspect]
     Active Substance: NAFRONYL
     Dosage: 200 MG, 2X/DAY
     Route: 048
     Dates: start: 2011
  5. DIAMICRON [Concomitant]
     Active Substance: GLICLAZIDE
     Dosage: UNK
  6. FUROSEMIDE. [Suspect]
     Active Substance: FUROSEMIDE
     Dosage: 40 MG, THREE TIMES A DAY
     Route: 048
     Dates: start: 2011
  7. GLICLAZIDE [Suspect]
     Active Substance: GLICLAZIDE
     Dosage: 30 MG, 2X/DAY
     Route: 048
     Dates: start: 2011
  8. ZYTIGA [Suspect]
     Active Substance: ABIRATERONE ACETATE
     Dosage: 4 DF, DAILY
     Route: 048
     Dates: start: 201301
  9. FIRMAGON [Suspect]
     Active Substance: DEGARELIX ACETATE
     Dosage: 80 MG ONCE A MONTH
     Route: 058
     Dates: start: 201111
  10. INEXIUM [Suspect]
     Active Substance: ESOMEPRAZOLE
     Dosage: 20 MG, DAILY
     Route: 048
     Dates: start: 2011
  11. CARDENSIEL [Concomitant]
     Active Substance: BISOPROLOL FUMARATE
     Dosage: UNK
  12. ATORVASTATIN CALCIUM. [Suspect]
     Active Substance: ATORVASTATIN CALCIUM
     Dosage: 40 MG, DAILY
     Route: 048
     Dates: start: 2011
  13. CORTANCYL [Suspect]
     Active Substance: PREDNISONE
     Dosage: 10 MG, DAILY
     Route: 048
     Dates: start: 2011
  14. XGEVA [Suspect]
     Active Substance: DENOSUMAB
     Dosage: 120 MG ONCE A MONTH
     Route: 058
     Dates: start: 201401
  15. LANTUS [Suspect]
     Active Substance: INSULIN GLARGINE
     Dosage: 20 IU, UNK
     Route: 058
  16. DIFFU K [Suspect]
     Active Substance: POTASSIUM CHLORIDE
     Dosage: 1 DF, DAILY
     Route: 048
     Dates: start: 2011
  17. PREVISCAN [Suspect]
     Active Substance: FLUINDIONE
     Dosage: 15 MG, DAILY
     Route: 048
     Dates: start: 2011

REACTIONS (2)
  - Hepatic enzyme increased [Not Recovered/Not Resolved]
  - Lumbar spinal stenosis [Unknown]

NARRATIVE: CASE EVENT DATE: 20111011
